FAERS Safety Report 4499693-2 (Version None)
Quarter: 2004Q4

REPORT INFORMATION
  Report Type: 
  Country: None (occurrence: None)
  Receive Date: 20041112
  Receipt Date: 20041028
  Transmission Date: 20050328
  Serious: Yes (Death, Other)
  Sender: FDA-Public Use
  Company Number: PHFR2004GB03975

PATIENT
  Age: 24 Year
  Sex: Male

DRUGS (7)
  1. MELLARIL [Suspect]
     Indication: SCHIZOPHRENIA
     Dosage: 800MG/DAY
     Route: 065
     Dates: start: 19870101
  2. MELLARIL [Suspect]
     Dosage: 1200MG/DAY
     Route: 065
  3. MELLARIL [Suspect]
     Dosage: 1600 MG/DAY
     Dates: start: 19870101
  4. PROMAZINE HCL [Concomitant]
     Dosage: 200 MG/DAY
     Route: 048
  5. BENZODIAZEPINES [Concomitant]
     Route: 048
  6. FLUPENTIXOL DIHYDROCHLORIDE [Concomitant]
     Dosage: 300 MG, QW
     Route: 030
  7. HALOPERIDOL [Concomitant]
     Dosage: 160 MG/DAY
     Route: 048

REACTIONS (5)
  - ARRHYTHMIA [None]
  - ASPHYXIA [None]
  - CHOKING [None]
  - MEDICATION ERROR [None]
  - SUDDEN DEATH [None]
